FAERS Safety Report 6166545-1 (Version None)
Quarter: 2009Q2

REPORT INFORMATION
  Report Type: 
  Country: None (occurrence: None)
  Receive Date: 20090424
  Receipt Date: 20090403
  Transmission Date: 20091009
  Serious: Yes (Other)
  Sender: FDA-Public Use
  Company Number: US-ROCHE-628297

PATIENT
  Sex: Female

DRUGS (5)
  1. MYCOPHENOLATE MOFETIL [Suspect]
     Indication: PRIMARY PROGRESSIVE MULTIPLE SCLEROSIS
     Dosage: DAILY DOSES : 2DF,1DF FORM : PILLS
     Route: 065
     Dates: start: 20080801
  2. MYCOPHENOLATE MOFETIL [Suspect]
     Dosage: DAILY DOSES : 2DF,1DF
     Route: 065
  3. INTERFERON BETA-1B [Suspect]
     Indication: PRIMARY PROGRESSIVE MULTIPLE SCLEROSIS
     Dosage: LOT NUMBER : XA7211A
     Route: 058
     Dates: start: 20060330
  4. INTERFERON BETA-1B [Suspect]
     Dosage: LOT NUMBER : YA0406A
     Route: 058
  5. INTERFERON BETA-1B [Suspect]
     Dosage: LOT NUMBER : YA4248A
     Route: 058

REACTIONS (4)
  - ARTHRALGIA [None]
  - EXOSTOSIS [None]
  - JOINT SPRAIN [None]
  - PAIN IN EXTREMITY [None]
